FAERS Safety Report 14742428 (Version 2)
Quarter: 2018Q3

REPORT INFORMATION
  Report Type: Report from Study
  Country: US (occurrence: US)
  Receive Date: 20180410
  Receipt Date: 20180717
  Transmission Date: 20181010
  Serious: Yes (Hospitalization, Other)
  Sender: FDA-Public Use
  Company Number: US-BAYER-2018-064548

PATIENT
  Age: 88 Year
  Sex: Male
  Weight: 103.4 kg

DRUGS (13)
  1. LISINOPRIL. [Concomitant]
     Active Substance: LISINOPRIL
     Dosage: 5 MG DAILY
  2. MULTIVITAMIN [Concomitant]
     Active Substance: VITAMINS
  3. XOFIGO [Suspect]
     Active Substance: RADIUM RA-223 DICHLORIDE
     Indication: PROSTATE CANCER METASTATIC
  4. CALCIUM [Concomitant]
     Active Substance: CALCIUM
  5. FUROSEMIDE. [Concomitant]
     Active Substance: FUROSEMIDE
     Dosage: 40 MG DAILY
  6. SIMVASTATIN. [Concomitant]
     Active Substance: SIMVASTATIN
     Dosage: 80 MG DAILY
  7. ASPIRIN. [Concomitant]
     Active Substance: ASPIRIN
     Dosage: 325 MG DAILY
  8. XOFIGO [Suspect]
     Active Substance: RADIUM RA-223 DICHLORIDE
     Indication: HORMONE-REFRACTORY PROSTATE CANCER
     Dosage: 154.70 ?CI, ONCE EVERY 28 DAYS
     Route: 042
     Dates: start: 20180301, end: 20180301
  9. NOVOLOG [Concomitant]
     Active Substance: INSULIN ASPART
  10. LEVOTHYROXINE. [Concomitant]
     Active Substance: LEVOTHYROXINE
     Dosage: 112 MG DAILY
  11. PLAVIX [Concomitant]
     Active Substance: CLOPIDOGREL BISULFATE
     Dosage: 75 MG DAILY
  12. XOFIGO [Suspect]
     Active Substance: RADIUM RA-223 DICHLORIDE
     Indication: METASTASES TO BONE
  13. PANTOPRAZOLE [Concomitant]
     Active Substance: PANTOPRAZOLE
     Dosage: 40 MG DAILY

REACTIONS (13)
  - Metastases to bone [None]
  - Pain [None]
  - Asthenia [None]
  - Prostatic specific antigen increased [None]
  - Haemoglobin decreased [None]
  - Dyspnoea [None]
  - Pneumonia [None]
  - Fatigue [None]
  - Blood pressure systolic increased [None]
  - Platelet count decreased [None]
  - Deep vein thrombosis [None]
  - Arthralgia [None]
  - Oedema peripheral [None]
